FAERS Safety Report 9185758 (Version 3)
Quarter: 2014Q1

REPORT INFORMATION
  Report Type: Spontaneous
  Country: US (occurrence: US)
  Receive Date: 20121031
  Receipt Date: 20140203
  Transmission Date: 20141002
  Serious: Yes (Hospitalization)
  Sender: FDA-Public Use
  Company Number: US-BAYER-2012-113459

PATIENT
  Age: 20 Year
  Sex: Female
  Weight: 61.22 kg

DRUGS (1)
  1. YAZ [Suspect]
     Indication: PREMENSTRUAL SYNDROME
     Dosage: UNK
     Dates: start: 2007, end: 2008

REACTIONS (8)
  - Cholelithiasis [None]
  - Pancreatitis [None]
  - Cholecystitis chronic [None]
  - Injury [None]
  - Emotional distress [None]
  - Anxiety [None]
  - Psychological trauma [None]
  - Abdominal pain [None]
